FAERS Safety Report 6678632-X (Version None)
Quarter: 2010Q2

REPORT INFORMATION
  Report Type: 
  Country: None (occurrence: None)
  Receive Date: 20100413
  Receipt Date: 20100402
  Transmission Date: 20101027
  Serious: Yes (Hospitalization)
  Sender: FDA-Public Use
  Company Number: US-JNJFOC-20100301611

PATIENT
  Sex: Female

DRUGS (1)
  1. REMICADE [Suspect]
     Indication: CROHN'S DISEASE
     Dosage: (DOSE AND FREQUENCY UNSPECIFIED)
     Route: 042

REACTIONS (2)
  - NEURITIS [None]
  - PAIN IN EXTREMITY [None]
